FAERS Safety Report 17521597 (Version 2)
Quarter: 2020Q2

REPORT INFORMATION
  Report Type: Spontaneous
  Country: US (occurrence: US)
  Receive Date: 20200310
  Receipt Date: 20200406
  Transmission Date: 20200713
  Serious: No
  Sender: FDA-Public Use
  Company Number: US-ASTRAZENECA-2020SE28691

PATIENT
  Age: 722 Month
  Sex: Male
  Weight: 136.1 kg

DRUGS (6)
  1. CLONIDINE. [Concomitant]
     Active Substance: CLONIDINE
     Indication: BLOOD PRESSURE ABNORMAL
     Route: 048
  2. BYDUREON BCISE [Suspect]
     Active Substance: EXENATIDE
     Indication: TYPE 2 DIABETES MELLITUS
     Route: 058
     Dates: start: 2019
  3. AMLODIPINE BENAZ [Concomitant]
     Indication: BLOOD PRESSURE ABNORMAL
     Dosage: 10-40 MG DAILY
     Route: 048
  4. METFORMIN [Concomitant]
     Active Substance: METFORMIN HYDROCHLORIDE
     Indication: DIABETES MELLITUS
     Route: 048
  5. METOPROLOL SUCCINATE. [Concomitant]
     Active Substance: METOPROLOL SUCCINATE
     Indication: BLOOD PRESSURE ABNORMAL
     Route: 048
  6. GLIPIZIDE. [Concomitant]
     Active Substance: GLIPIZIDE
     Indication: DIABETES MELLITUS
     Route: 048

REACTIONS (11)
  - Dizziness [Recovered/Resolved]
  - Vascular injury [Unknown]
  - Injection site indentation [Unknown]
  - Drug delivery system malfunction [Unknown]
  - Incorrect disposal of product [Unknown]
  - Drug dose omission by device [Recovered/Resolved]
  - Needle issue [Unknown]
  - Asthenia [Unknown]
  - Injection site haemorrhage [Unknown]
  - Blood glucose fluctuation [Unknown]
  - Blood glucose increased [Unknown]

NARRATIVE: CASE EVENT DATE: 202002
